FAERS Safety Report 8615096-0 (Version None)
Quarter: 2012Q3

REPORT INFORMATION
  Report Type: 
  Country: None (occurrence: None)
  Receive Date: 20120823
  Receipt Date: 20120821
  Transmission Date: 20120928
  Serious: Yes (Hospitalization, Other)
  Sender: FDA-Public Use
  Company Number: PHHY2012BR037863

PATIENT
  Sex: Male

DRUGS (4)
  1. LATANOPROST [Concomitant]
     Indication: GLAUCOMA
     Dosage: 1 DF, DAILY
  2. DIOVAN HCT [Suspect]
     Indication: HYPERTENSION
     Dosage: 1 TABLET (80MG VALSARTAN/12.5 MG HYDROCHLOROTHIAZIDE), DAILY
     Route: 048
  3. METFORMIN [Concomitant]
     Dosage: 1 DF, AT NIGHT
  4. METFORMIN HYDROCHLORIDE [Concomitant]
     Indication: DIABETES MELLITUS
     Dosage: 1 DF, QHS

REACTIONS (4)
  - PLATELET COUNT INCREASED [None]
  - ARTHRALGIA [None]
  - HEADACHE [None]
  - DIABETES MELLITUS [None]
